FAERS Safety Report 10192640 (Version 2)
Quarter: 2014Q2

REPORT INFORMATION
  Report Type: Report from Study
  Country: CA (occurrence: CA)
  Receive Date: 20140523
  Receipt Date: 20140523
  Transmission Date: 20141212
  Serious: Yes (Hospitalization)
  Sender: FDA-Public Use
  Company Number: CA-ABBVIE-13P-028-1091375-00

PATIENT
  Age: 75 Year
  Sex: Male

DRUGS (1)
  1. HUMIRA [Suspect]
     Indication: SERONEGATIVE ARTHRITIS
     Route: 058
     Dates: start: 20120320, end: 201309

REACTIONS (4)
  - Cardiac disorder [Unknown]
  - Myocardial infarction [Unknown]
  - Malaise [Unknown]
  - Dyspnoea [Unknown]
